FAERS Safety Report 7992665-2 (Version None)
Quarter: 2011Q4

REPORT INFORMATION
  Report Type: 
  Country: None (occurrence: None)
  Receive Date: 20111219
  Receipt Date: 20110318
  Transmission Date: 20120403
  Serious: No
  Sender: FDA-Public Use
  Company Number: US-ASTRAZENECA-2011SE15482

PATIENT
  Age: 75 Year
  Sex: Male
  Weight: 86.2 kg

DRUGS (6)
  1. CRESTOR [Suspect]
     Route: 048
  2. DIOVAN [Concomitant]
     Indication: HYPERTENSION
  3. MULTI-VITAMIN [Concomitant]
     Indication: NUTRITIONAL SUPPORT
  4. NEXIUM [Concomitant]
     Indication: GASTROOESOPHAGEAL REFLUX DISEASE
  5. CALCIUM [Concomitant]
     Indication: NUTRITIONAL SUPPORT
  6. ASPIRIN [Concomitant]
     Indication: CARDIOVASCULAR EVENT PROPHYLAXIS

REACTIONS (1)
  - OEDEMA PERIPHERAL [None]
